FAERS Safety Report 11225292 (Version 5)
Quarter: 2016Q2

REPORT INFORMATION
  Report Type: Spontaneous
  Country: US (occurrence: US)
  Receive Date: 20150629
  Receipt Date: 20160623
  Transmission Date: 20160815
  Serious: Yes (Hospitalization)
  Sender: FDA-Public Use
  Company Number: US-ACTELION-A-NJ2015-119364

PATIENT
  Age: 69 Year
  Sex: Female
  Weight: 57.6 kg

DRUGS (2)
  1. REMODULIN [Concomitant]
     Active Substance: TREPROSTINIL
  2. OPSUMIT [Suspect]
     Active Substance: MACITENTAN
     Indication: PULMONARY ARTERIAL HYPERTENSION
     Dosage: 10 MG, QD
     Route: 048
     Dates: start: 20140129

REACTIONS (8)
  - Pneumonia [Unknown]
  - Chest discomfort [Unknown]
  - Renal impairment [Unknown]
  - Viral infection [Unknown]
  - Bacterial infection [Unknown]
  - Chronic respiratory failure [Unknown]
  - Weight increased [Unknown]
  - Right ventricular failure [Unknown]
